FAERS Safety Report 8439212-9 (Version None)
Quarter: 2012Q2

REPORT INFORMATION
  Report Type: 
  Country: None (occurrence: None)
  Receive Date: 20120615
  Receipt Date: 20120609
  Transmission Date: 20120825
  Serious: Yes (Other)
  Sender: FDA-Public Use
  Company Number: PHHY2012MX049313

PATIENT
  Sex: Male

DRUGS (1)
  1. EXELON [Suspect]
     Indication: DEMENTIA ALZHEIMER'S TYPE
     Dosage: 4.6 MG DAILY (PATCH 5)
     Route: 062
     Dates: start: 20120117

REACTIONS (4)
  - GENERAL PHYSICAL HEALTH DETERIORATION [None]
  - CEREBRAL INFARCTION [None]
  - PARKINSON'S DISEASE [None]
  - PROSTATIC DISORDER [None]
